FAERS Safety Report 4448475-6 (Version None)
Quarter: 2004Q3

REPORT INFORMATION
  Report Type: 
  Country: None (occurrence: None)
  Receive Date: 20040729
  Receipt Date: 20031209
  Transmission Date: 20050211
  Serious: Yes (Death)
  Sender: FDA-Public Use
  Company Number: USA-2003-0011821

PATIENT
  Age: 29 Year
  Sex: Male
  Weight: 83.4 kg

DRUGS (6)
  1. MORPHINE SULFATE [Suspect]
  2. ETHANOL (ETHANOL) [Suspect]
  3. MORPHINE SULFATE [Suspect]
  4. HEROIN (DIAMORPHINE) [Suspect]
  5. CODEINE (CODEINE) [Suspect]
  6. QUININE (QUININE) [Suspect]

REACTIONS (2)
  - ACCIDENTAL OVERDOSE [None]
  - MULTIPLE DRUG OVERDOSE [None]
